FAERS Safety Report 10049394 (Version 2)
Quarter: 2014Q2

REPORT INFORMATION
  Report Type: Spontaneous
  Country: US (occurrence: US)
  Receive Date: 20140401
  Receipt Date: 20140418
  Transmission Date: 20141212
  Serious: Yes (Other)
  Sender: FDA-Public Use
  Company Number: US-JNJFOC-20140317300

PATIENT
  Age: 62 Year
  Sex: Male
  Weight: 147.19 kg

DRUGS (10)
  1. INVOKANA [Suspect]
     Indication: TYPE 2 DIABETES MELLITUS
     Route: 048
     Dates: start: 20131025
  2. NOVOLOG [Concomitant]
     Indication: TYPE 2 DIABETES MELLITUS
     Route: 058
  3. LANTUS INSULIN [Concomitant]
     Indication: TYPE 2 DIABETES MELLITUS
     Route: 058
  4. VICTOZA [Concomitant]
     Indication: TYPE 2 DIABETES MELLITUS
     Route: 058
     Dates: start: 2010
  5. VASOTEC [Concomitant]
     Indication: HYPERTENSION
     Route: 048
  6. VITAMIN D3 [Concomitant]
     Indication: VITAMIN D DEFICIENCY
     Route: 048
  7. PROZAC [Concomitant]
     Indication: OBESITY
     Route: 048
  8. MEVACOR [Concomitant]
     Indication: DYSLIPIDAEMIA
     Route: 048
  9. VIAGRA [Concomitant]
     Indication: ERECTILE DYSFUNCTION
     Route: 048
  10. LOVASTATIN [Concomitant]
     Indication: LIPIDS INCREASED

REACTIONS (1)
  - Nephrolithiasis [Recovered/Resolved]
